FAERS Safety Report 14986430 (Version 1)
Quarter: 2018Q2

REPORT INFORMATION
  Report Type: Report from Study
  Country: None (occurrence: US)
  Receive Date: 20180607
  Receipt Date: 20180607
  Transmission Date: 20180711
  Serious: Yes (Other)
  Sender: FDA-Public Use
  Company Number: US-ABBVIE-18P-163-2374758-00

PATIENT
  Sex: Male

DRUGS (1)
  1. LUPRON [Suspect]
     Active Substance: LEUPROLIDE ACETATE
     Indication: PRODUCT USED FOR UNKNOWN INDICATION
     Route: 065

REACTIONS (13)
  - Nocturia [Unknown]
  - Prostate cancer [Unknown]
  - Change of bowel habit [Unknown]
  - Breast tenderness [Unknown]
  - Hot flush [Unknown]
  - Decreased appetite [Unknown]
  - Abdominal pain [Unknown]
  - Urine flow decreased [Unknown]
  - Prostatic specific antigen increased [Unknown]
  - Night sweats [Unknown]
  - Mood swings [Unknown]
  - Abnormal loss of weight [Unknown]
  - Personality change [Unknown]
